FAERS Safety Report 9540694 (Version 1)
Quarter: 2013Q3

REPORT INFORMATION
  Report Type: Spontaneous
  Country: US (occurrence: US)
  Receive Date: 20130920
  Receipt Date: 20130920
  Transmission Date: 20140515
  Serious: Yes (Other)
  Sender: FDA-Public Use
  Company Number: US-BAXTER-2013BAX024553

PATIENT
  Age: 59 Year
  Sex: Male

DRUGS (2)
  1. NEXTERONE_AMIODARONE, HYDROCHLORIDE 1.80 MG/ML_SOLUTION FOR INFUSION_B [Suspect]
     Indication: ATRIAL FIBRILLATION
     Route: 042
  2. AMIODARONE [Suspect]
     Indication: ATRIAL FIBRILLATION
     Route: 048

REACTIONS (2)
  - Hyperthyroidism [Not Recovered/Not Resolved]
  - Papillary thyroid cancer [Unknown]
